FAERS Safety Report 5473056-5 (Version None)
Quarter: 2007Q4

REPORT INFORMATION
  Report Type: 
  Country: None (occurrence: None)
  Receive Date: 20071001
  Receipt Date: 20070308
  Transmission Date: 20080405
  Serious: No
  Sender: FDA-Public Use
  Company Number: US-ASTRAZENECA-2007UW04528

PATIENT
  Age: 72 Year
  Sex: Female

DRUGS (9)
  1. ARIMIDEX [Suspect]
     Indication: BREAST CANCER
  2. OXYGEN THERAPY [Concomitant]
  3. ADVAIR DISKUS 100/50 [Concomitant]
  4. ATENOLOL [Concomitant]
  5. NORVASC [Concomitant]
  6. PROZAC [Concomitant]
  7. SINGULAIR [Concomitant]
  8. HYDROCHLOROTHIAZIDE [Concomitant]
  9. VICODIN [Concomitant]

REACTIONS (2)
  - INFLUENZA LIKE ILLNESS [None]
  - PHARYNGOLARYNGEAL PAIN [None]
